FAERS Safety Report 21473543 (Version 13)
Quarter: 2023Q1

REPORT INFORMATION
  Report Type: Report from Study
  Country: CA (occurrence: CA)
  Receive Date: 20221018
  Receipt Date: 20230228
  Transmission Date: 20230418
  Serious: Yes (Death, Hospitalization, Other)
  Sender: FDA-Public Use
  Company Number: CA-GILEAD-2022-0599685

PATIENT
  Age: 41 Year
  Sex: Female

DRUGS (23)
  1. SACITUZUMAB GOVITECAN-HZIY [Suspect]
     Active Substance: SACITUZUMAB GOVITECAN-HZIY
     Indication: Triple negative breast cancer
     Dosage: 1180 MG, D1
     Route: 042
     Dates: start: 20220920, end: 20230103
  2. SACITUZUMAB GOVITECAN-HZIY [Suspect]
     Active Substance: SACITUZUMAB GOVITECAN-HZIY
     Dosage: 800 MG, D8
     Route: 042
     Dates: start: 20220927, end: 20220927
  3. SACITUZUMAB GOVITECAN-HZIY [Suspect]
     Active Substance: SACITUZUMAB GOVITECAN-HZIY
     Dosage: 800 MG, D1
     Route: 042
     Dates: start: 20221118, end: 20221118
  4. SACITUZUMAB GOVITECAN-HZIY [Suspect]
     Active Substance: SACITUZUMAB GOVITECAN-HZIY
     Dosage: 788 MG [DAY 1]8
     Route: 042
     Dates: start: 20221129
  5. ACETAMINOPHEN [Concomitant]
     Active Substance: ACETAMINOPHEN
     Dosage: 650 MG  PRE-MED
  6. ACETAMINOPHEN [Concomitant]
     Active Substance: ACETAMINOPHEN
     Dosage: 650 MG ORAL (PRE-MEDICATION PRIOR TO TRODELVY)
  7. ACETAMINOPHEN [Concomitant]
     Active Substance: ACETAMINOPHEN
     Dosage: 650 MG PO (PRE-MEDICATION PRIOR TO TRODELVY)
  8. ACETAMINOPHEN [Concomitant]
     Active Substance: ACETAMINOPHEN
     Dosage: 650 MG PO (PRE-MEDICATION PRIOR TO TRODELVY)
  9. ACETAMINOPHEN [Concomitant]
     Active Substance: ACETAMINOPHEN
     Dosage: 650 MG PO (PRE-MEDICATION PRIOR TO TRODELVY)
  10. DIPHENHYDRAMINE [Concomitant]
     Active Substance: DIPHENHYDRAMINE
     Dosage: 50 MG PIV PRE-MED
  11. DIPHENHYDRAMINE [Concomitant]
     Active Substance: DIPHENHYDRAMINE
     Dosage: 50 MG IV (PRE-MEDICATION PRIOR TO TRODELVY)
  12. DIPHENHYDRAMINE [Concomitant]
     Active Substance: DIPHENHYDRAMINE
     Dosage: 50 MG PO (PRE-MEDICATION PRIOR TO TRODELVY)
  13. DIPHENHYDRAMINE [Concomitant]
     Active Substance: DIPHENHYDRAMINE
     Dosage: 50 MG PO (PRE-MEDICATION PRIOR TO TRODELVY)
  14. DIPHENHYDRAMINE [Concomitant]
     Active Substance: DIPHENHYDRAMINE
     Dosage: 50 MG PO (PRE-MEDICATION PRIOR TO TRODELVY)
  15. FAMOTIDINE [Concomitant]
     Active Substance: FAMOTIDINE
     Dosage: 20 MG PO PRE-MED
  16. FAMOTIDINE [Concomitant]
     Active Substance: FAMOTIDINE
     Dosage: 20 MG ORAL (PRE-MEDICATION PRIOR TO TRODELVY)
  17. FAMOTIDINE [Concomitant]
     Active Substance: FAMOTIDINE
     Dosage: 20 MG PO (PRE-MEDICATION PRIOR TO TRODELVY)
  18. FAMOTIDINE [Concomitant]
     Active Substance: FAMOTIDINE
     Dosage: 20 MG PO (PRE-MEDICATION PRIOR TO TRODELVY)
  19. FAMOTIDINE [Concomitant]
     Active Substance: FAMOTIDINE
     Dosage: 20 MG PO (PRE-MEDICATION PRIOR TO TRODELVY)
  20. ZOFRAN [Concomitant]
     Active Substance: ONDANSETRON HYDROCHLORIDE
     Dosage: 8 MG ORAL (PRE-MEDICATION PRIOR TO TRODELVY)
  21. DECADRON [Concomitant]
     Active Substance: DEXAMETHASONE
     Dosage: 12 MG ORAL (PRE-MEDICATION PRIOR TO TRODELVY)
  22. FASENRA [Concomitant]
     Active Substance: BENRALIZUMAB
  23. ONDANSETRON [Concomitant]
     Active Substance: ONDANSETRON
     Dosage: 8 MG PO (PRE-MEDICATION PRIOR TO TRODELVY)

REACTIONS (19)
  - Blood disorder [Not Recovered/Not Resolved]
  - Asthenia [Not Recovered/Not Resolved]
  - Dehydration [Not Recovered/Not Resolved]
  - Death [Fatal]
  - Breast operation [Recovering/Resolving]
  - Vascular device occlusion [Unknown]
  - Weight fluctuation [Unknown]
  - Weight fluctuation [Not Recovered/Not Resolved]
  - Heart rate increased [Unknown]
  - Pyrexia [Unknown]
  - Asthenia [Unknown]
  - Decreased appetite [Unknown]
  - Nausea [Unknown]
  - Alopecia [Unknown]
  - Diarrhoea [Unknown]
  - Injection site swelling [Not Recovered/Not Resolved]
  - Peripheral swelling [Not Recovered/Not Resolved]
  - Inappropriate schedule of product administration [Unknown]
  - Inappropriate schedule of product administration [Unknown]

NARRATIVE: CASE EVENT DATE: 20221213
